FAERS Safety Report 17633014 (Version 1)
Quarter: 2020Q2

REPORT INFORMATION
  Report Type: Spontaneous
  Country: US (occurrence: US)
  Receive Date: 20200406
  Receipt Date: 20200406
  Transmission Date: 20200713
  Serious: Yes (Other)
  Sender: FDA-Public Use
  Company Number: US-SA-2020SA084903

PATIENT
  Age: 47 Year
  Sex: Female
  Weight: 52.1 kg

DRUGS (6)
  1. MULTIVITAMINS [VITAMINS NOS] [Concomitant]
     Active Substance: VITAMINS
  2. TAXOTERE [Suspect]
     Active Substance: DOCETAXEL
     Dosage: 150MG - 110MG FOR EVERY 5-6 WEEKS
     Route: 042
     Dates: start: 20120801, end: 20120801
  3. TAXOTERE [Suspect]
     Active Substance: DOCETAXEL
     Indication: BREAST CANCER FEMALE
     Dosage: 150MG - 110MG FOR EVERY 5-6 WEEKS
     Route: 042
     Dates: start: 20120404, end: 20120404
  4. CYTOXAN [Concomitant]
     Active Substance: CYCLOPHOSPHAMIDE
  5. NEOSAR [Concomitant]
     Active Substance: CYCLOPHOSPHAMIDE
     Indication: BREAST CANCER FEMALE
  6. TAMOXIFEN [Concomitant]
     Active Substance: TAMOXIFEN
     Dosage: UNK
     Dates: start: 20130101

REACTIONS (1)
  - Alopecia [Recovering/Resolving]

NARRATIVE: CASE EVENT DATE: 20130101
